FAERS Safety Report 6217809-4 (Version None)
Quarter: 2009Q2

REPORT INFORMATION
  Report Type: 
  Country: None (occurrence: None)
  Receive Date: 20090608
  Receipt Date: 20090603
  Transmission Date: 20091009
  Serious: No
  Sender: FDA-Public Use
  Company Number: KR-JNJFOC-20090601445

PATIENT
  Age: 63 Year
  Sex: Female

DRUGS (1)
  1. DUROGESIC D TRANS PATCH [Suspect]
     Indication: ARTHRALGIA
     Route: 062

REACTIONS (6)
  - ANOREXIA [None]
  - COLD SWEAT [None]
  - DRUG ADMINISTRATION ERROR [None]
  - DRUG PRESCRIBING ERROR [None]
  - NAUSEA [None]
  - VOMITING [None]
